FAERS Safety Report 7927047-2 (Version None)
Quarter: 2011Q4

REPORT INFORMATION
  Report Type: 
  Country: None (occurrence: None)
  Receive Date: 20111118
  Receipt Date: 20111109
  Transmission Date: 20120403
  Serious: Yes (Hospitalization)
  Sender: FDA-Public Use
  Company Number: CH-BRISTOL-MYERS SQUIBB COMPANY-16221202

PATIENT
  Age: 25 Year
  Sex: Male

DRUGS (4)
  1. LORAZEPAM [Suspect]
     Route: 048
  2. ZYPREXA [Suspect]
     Dosage: 5 MG DAILY WERE GIVEN FROM JULY 26, 2011 UNTIL AUGUST 3, 2011
     Route: 048
     Dates: start: 20100801, end: 20110803
  3. VALPROATE SODIUM [Suspect]
  4. ABILIFY [Suspect]
     Indication: SCHIZOPHRENIA
     Dosage: 10 MG DAILYAUGUST 2010;INCREASED UNTIL 30 MG DAILY JULY 9, 2011 AND IS CURRENTLY ONGOING
     Route: 048
     Dates: start: 20100807

REACTIONS (3)
  - SUBDURAL HAEMATOMA [None]
  - DYSKINESIA [None]
  - HEAD INJURY [None]
